FAERS Safety Report 10645871 (Version 1)
Quarter: 2014Q4

REPORT INFORMATION
  Report Type: Spontaneous
  Country: US (occurrence: None)
  Receive Date: 20141205
  Receipt Date: 20141205
  Transmission Date: 20150529
  Serious: Yes (Other)
  Sender: FDA-Public Use
  Company Number: 1000071337

PATIENT
  Age: 87 Year
  Sex: Female

DRUGS (7)
  1. NAMENDA [Suspect]
     Active Substance: MEMANTINE HYDROCHLORIDE
     Indication: DEMENTIA ALZHEIMER^S TYPE
     Dosage: 20 MG (10 MG, 2 IN 1 D)
     Dates: start: 20141002
  2. PLAVIX (CLOPDOGREL BISULFATE) (CLOPIDOGREL BISULFATE) [Concomitant]
  3. PRAVASTATIN (PRAVASTATIN) (PRAVASTATIN) [Concomitant]
  4. ARICEPT (DONEPEZIL HYDROCHLORIDE) (DONEPEZIL HYDROCHLORIDE) [Concomitant]
  5. LISINOPRIL (LISINOPRIL) (LISINOPRIL) [Concomitant]
     Active Substance: LISINOPRIL
  6. VITAMINS NOS (VITAMINS NOS) (VITAMINS NOS) [Concomitant]
  7. NAMENDA [Suspect]
     Active Substance: MEMANTINE HYDROCHLORIDE
     Indication: DEMENTIA ALZHEIMER^S TYPE
     Dosage: 20 MG (10 MG, 2 IN 1 D)
     Dates: start: 2014

REACTIONS (7)
  - Feeling abnormal [None]
  - Dysuria [None]
  - Memory impairment [None]
  - Fatigue [None]
  - Somnolence [None]
  - Lethargy [None]
  - Blood pressure increased [None]

NARRATIVE: CASE EVENT DATE: 2014
